FAERS Safety Report 12238748 (Version 1)
Quarter: 2016Q2

REPORT INFORMATION
  Report Type: Spontaneous
  Country: US (occurrence: US)
  Receive Date: 20160405
  Receipt Date: 20160405
  Transmission Date: 20160815
  Serious: No
  Sender: FDA-Public Use
  Company Number: US-TEVA-581588USA

PATIENT
  Sex: Female

DRUGS (2)
  1. WARFARIN [Suspect]
     Active Substance: WARFARIN
     Indication: ANTICOAGULANT THERAPY
     Route: 048
     Dates: start: 20150623
  2. WARFARIN [Suspect]
     Active Substance: WARFARIN
     Indication: COAGULATION FACTOR VIII LEVEL ABNORMAL

REACTIONS (1)
  - International normalised ratio decreased [Unknown]
